FAERS Safety Report 13297949 (Version 1)
Quarter: 2017Q1

REPORT INFORMATION
  Report Type: Spontaneous
  Country: US (occurrence: US)
  Receive Date: 20170303
  Receipt Date: 20170303
  Transmission Date: 20170428
  Serious: Yes (Other)
  Sender: FDA-Public Use
  Company Number: None

PATIENT
  Sex: Female

DRUGS (1)
  1. NUCALA [Suspect]
     Active Substance: MEPOLIZUMAB
     Indication: ASTHMA
     Dosage: Q28 DAYS
     Route: 058
     Dates: start: 20161005, end: 20170220

REACTIONS (4)
  - Asthma [None]
  - Headache [None]
  - Drug hypersensitivity [None]
  - Fatigue [None]
